FAERS Safety Report 16158205 (Version 3)
Quarter: 2019Q2

REPORT INFORMATION
  Report Type: Spontaneous
  Country: US (occurrence: US)
  Receive Date: 20190404
  Receipt Date: 20190628
  Transmission Date: 20190711
  Serious: Yes (Other)
  Sender: FDA-Public Use
  Company Number: US-PFIZER INC-2019147305

PATIENT
  Age: 59 Year
  Sex: Female

DRUGS (2)
  1. IBRANCE [Suspect]
     Active Substance: PALBOCICLIB
     Indication: BREAST CANCER METASTATIC
     Dosage: 125 MG, UNK
     Dates: start: 20190226, end: 2019
  2. IBRANCE [Suspect]
     Active Substance: PALBOCICLIB
     Dosage: 125 MG, CYCLIC (1 CAPSULE, DAILY WITH FOOD FOR 21 DAYS ON, AND 7 DAYS OFF ON)
     Route: 048
     Dates: start: 2019

REACTIONS (3)
  - Neutropenia [Unknown]
  - White blood cell count decreased [Unknown]
  - Full blood count decreased [Unknown]
